FAERS Safety Report 4724740-X (Version None)
Quarter: 2005Q3

REPORT INFORMATION
  Report Type: 
  Country: None (occurrence: None)
  Receive Date: 20050726
  Receipt Date: 20050718
  Transmission Date: 20060218
  Serious: Yes (Other)
  Sender: FDA-Public Use
  Company Number: US015308

PATIENT
  Sex: Male
  Weight: 118.2 kg

DRUGS (5)
  1. PAXIL [Suspect]
     Indication: DEPRESSION
     Dosage: 40MG UNKNOWN
     Route: 048
  2. ACTIQ [Suspect]
     Dosage: 800UG UNKNOWN
     Route: 065
     Dates: start: 20040101, end: 20040101
  3. ZOCOR [Suspect]
     Indication: BLOOD CHOLESTEROL INCREASED
     Dosage: 40MG UNKNOWN
     Route: 065
  4. ACEBUTOLOL [Suspect]
     Dosage: 400MG UNKNOWN
     Route: 065
  5. BUSPAR [Suspect]
     Indication: ANXIETY
     Dosage: 30MG UNKNOWN
     Route: 065
     Dates: start: 20040801

REACTIONS (4)
  - ANAEMIA [None]
  - APPLICATION SITE VESICLES [None]
  - DRUG INTERACTION [None]
  - OEDEMA PERIPHERAL [None]
